FAERS Safety Report 9523391 (Version 1)
Quarter: 2013Q1

REPORT INFORMATION
  Report Type: Spontaneous
  Country: US (occurrence: None)
  Receive Date: 20130305
  Receipt Date: 20130305
  Transmission Date: 20140127
  Serious: Yes (Hospitalization)
  Sender: FDA-Public Use
  Company Number: 163-21880-12012554

PATIENT
  Age: 75 Year
  Sex: Male

DRUGS (1)
  1. REVLIMID (LENALIDOMIDE)  (25 MILLIGRAM, CAPSULES) [Suspect]
     Indication: PLASMA CELL MYELOMA
     Route: 048
     Dates: start: 20111222

REACTIONS (4)
  - Vomiting [None]
  - Asthenia [None]
  - Pneumonia [None]
  - Abdominal pain [None]
